FAERS Safety Report 7266351-0 (Version None)
Quarter: 2011Q1

REPORT INFORMATION
  Report Type: 
  Country: None (occurrence: None)
  Receive Date: 20110131
  Receipt Date: 20110112
  Transmission Date: 20110831
  Serious: No
  Sender: FDA-Public Use
  Company Number: US-B.I. PHARMACEUTICALS,INC./RIDGEFIELD-2011-BP-01652BP

PATIENT
  Age: 77 Year
  Sex: Male

DRUGS (2)
  1. PRILOSEC [Concomitant]
     Indication: OESOPHAGEAL ACHALASIA
     Route: 048
     Dates: start: 20000101
  2. AGGRENOX [Suspect]
     Indication: CEREBROVASCULAR ACCIDENT
     Route: 048
     Dates: start: 20061225

REACTIONS (1)
  - OESOPHAGEAL POLYP [None]
